FAERS Safety Report 6469512-3 (Version None)
Quarter: 2009Q4

REPORT INFORMATION
  Report Type: 
  Country: None (occurrence: None)
  Receive Date: 20091203
  Receipt Date: 20091123
  Transmission Date: 20100525
  Serious: Yes (Hospitalization)
  Sender: FDA-Public Use
  Company Number: GB-PFIZER INC-2009301899

PATIENT
  Age: 47 Year
  Sex: Male

DRUGS (9)
  1. EPIRUBICIN HCL [Suspect]
     Indication: GASTROOESOPHAGEAL CANCER
     Dosage: UNK
     Dates: start: 20081223
  2. OXALIPLATIN [Suspect]
     Indication: GASTROOESOPHAGEAL CANCER
     Dosage: UNK
     Dates: start: 20081223
  3. PANITUMUMAB [Suspect]
     Indication: GASTROOESOPHAGEAL CANCER
     Dosage: UNK
     Dates: start: 20081223
  4. CAPECITABINE [Suspect]
     Indication: GASTROOESOPHAGEAL CANCER
     Dosage: UNK
     Dates: start: 20081223, end: 20090102
  5. SENNOSIDE B [Concomitant]
  6. DIPROBASE CREAM [Concomitant]
     Route: 061
  7. HYDROXYZINE HYDROCHLORIDE [Concomitant]
     Dosage: 25 MG, 1X/DAY
  8. LYMECYCLINE [Concomitant]
     Dosage: 408 MG, 1X/DAY
  9. BENZALKONIUM CHLORIDE/CHLORHEXIDINE/ISOPROPYL MYRISTATE/PARAFFIN [Concomitant]
     Route: 061

REACTIONS (1)
  - CHEST PAIN [None]
